FAERS Safety Report 9835204 (Version 2)
Quarter: 2014Q1

REPORT INFORMATION
  Report Type: Report from Study
  Country: US (occurrence: US)
  Receive Date: 20140122
  Receipt Date: 20140122
  Transmission Date: 20141002
  Serious: Yes (Death, Hospitalization)
  Sender: FDA-Public Use
  Company Number: US-BRISTOL-MYERS SQUIBB COMPANY-19895960

PATIENT
  Age: 76 Year
  Sex: Male
  Weight: 91.61 kg

DRUGS (48)
  1. NIVOLUMAB [Suspect]
     Indication: METASTATIC MALIGNANT MELANOMA
     Dosage: LAST DOSE:11NOV2013
     Route: 042
     Dates: start: 20131111, end: 20131209
  2. IPILIMUMAB [Suspect]
     Indication: METASTATIC MALIGNANT MELANOMA
     Dosage: LAST DOSE:11NOV2013
     Route: 042
     Dates: start: 20131111, end: 20131209
  3. BLINDED: PLACEBO [Suspect]
     Indication: METASTATIC MALIGNANT MELANOMA
     Dosage: LAST DOSE:11NOV2013
     Route: 042
     Dates: start: 20131111, end: 20131209
  4. FLOMAX [Concomitant]
  5. METFORMIN [Concomitant]
  6. QUINAPRIL [Concomitant]
  7. WELCHOL [Concomitant]
  8. BENADRYL [Concomitant]
     Dates: start: 20131118
  9. HYDROCORTISONE CREAM [Concomitant]
     Dates: start: 20131118
  10. PREDNISONE [Concomitant]
     Dosage: 25-27NOV13:80MG?28-28NOV13:60MG?29-30NOV13:40MG?1DEC13:20MG ONG
     Dates: start: 20131125
  11. FENTANYL [Concomitant]
  12. SODIUM CHLORIDE [Concomitant]
  13. PRAVASTATINE [Concomitant]
  14. MUPIROCIN [Concomitant]
  15. INSULIN LISPRO [Concomitant]
  16. SALINE [Concomitant]
  17. DEXTROSE [Concomitant]
  18. NITROGLYCERIN [Concomitant]
  19. MORPHINE SULFATE [Concomitant]
  20. LIDOCAINE HCL [Concomitant]
  21. PRAVACHOL [Concomitant]
  22. INSULIN GLARGINE [Concomitant]
  23. HYDRALAZINE HCL [Concomitant]
  24. AMIODARONE HCL [Concomitant]
  25. NALBUPHINE HCL [Concomitant]
  26. PRAVASTATIN SODIUM [Concomitant]
  27. ASPIRIN [Concomitant]
  28. LISINOPRIL [Concomitant]
  29. TAMSULOSIN [Concomitant]
  30. BUMETANIDE [Concomitant]
  31. PANTOPRAZOLE [Concomitant]
  32. DIPHENHYDRAMINE HCL [Concomitant]
  33. PHENYLEPHRINE [Concomitant]
  34. ALBUMIN HUMAN [Concomitant]
  35. LORAZEPAM [Concomitant]
  36. GADOTERIDOL [Concomitant]
  37. DOPAMINE [Concomitant]
  38. PYRIDOSTIGMINE BROMIDE [Concomitant]
  39. VANCOMYCIN HCL [Concomitant]
  40. CALCIUM GLUCONATE [Concomitant]
  41. PIPERACILLIN + TAZOBACTAM [Concomitant]
  42. ALBUTEROL SULFATE [Concomitant]
  43. ACETYLCYSTEINE [Concomitant]
  44. HEPARIN SODIUM [Concomitant]
  45. NOREPINEPHRINE BITARTRATE [Concomitant]
  46. ELECTROLYTE SOLUTION [Concomitant]
  47. ACETAMINOPHEN [Concomitant]
  48. MAGNESIUM SULFATE [Concomitant]

REACTIONS (3)
  - Ventricular arrhythmia [Fatal]
  - Myocardial infarction [Fatal]
  - Troponin I increased [Unknown]
